FAERS Safety Report 13442816 (Version 2)
Quarter: 2017Q2

REPORT INFORMATION
  Report Type: Spontaneous
  Country: US (occurrence: US)
  Receive Date: 20170414
  Receipt Date: 20170620
  Transmission Date: 20170830
  Serious: Yes (Hospitalization, Other)
  Sender: FDA-Public Use
  Company Number: US-PFIZER INC-2017154296

PATIENT
  Age: 79 Year
  Sex: Female
  Weight: 70 kg

DRUGS (3)
  1. PREMARIN [Suspect]
     Active Substance: ESTROGENS, CONJUGATED
     Indication: URINARY TRACT INFECTION
     Dosage: 15 MG, 2X/WEEK
     Dates: start: 20170330
  2. PREMARIN [Suspect]
     Active Substance: ESTROGENS, CONJUGATED
     Indication: ATROPHIC VULVOVAGINITIS
     Dosage: 15 MG, 2X/WEEK
     Dates: start: 20170530
  3. PREMARIN [Suspect]
     Active Substance: ESTROGENS, CONJUGATED
     Indication: HORMONE REPLACEMENT THERAPY
     Dosage: 1 DF, DAILY

REACTIONS (14)
  - Skin atrophy [Not Recovered/Not Resolved]
  - Vision blurred [Not Recovered/Not Resolved]
  - Vulvovaginal burning sensation [Not Recovered/Not Resolved]
  - Menopausal symptoms [Recovered/Resolved]
  - Urinary tract infection [Recovered/Resolved]
  - Hot flush [Recovering/Resolving]
  - Libido decreased [Not Recovered/Not Resolved]
  - Feeling abnormal [Not Recovered/Not Resolved]
  - Skin irritation [Not Recovered/Not Resolved]
  - Night sweats [Recovered/Resolved]
  - Dry skin [Not Recovered/Not Resolved]
  - Skin exfoliation [Not Recovered/Not Resolved]
  - Fungal infection [Not Recovered/Not Resolved]
  - Vulvovaginal discomfort [Not Recovered/Not Resolved]

NARRATIVE: CASE EVENT DATE: 20170303
